FAERS Safety Report 5312104-X (Version None)
Quarter: 2007Q2

REPORT INFORMATION
  Report Type: 
  Country: None (occurrence: None)
  Receive Date: 20070430
  Receipt Date: 20060727
  Transmission Date: 20071010
  Serious: No
  Sender: FDA-Public Use
  Company Number: 2006UW14078

PATIENT
  Age: 46 Year
  Sex: Male
  Weight: 73.6 kg

DRUGS (10)
  1. NEXIUM [Suspect]
     Indication: GASTROOESOPHAGEAL REFLUX DISEASE
     Route: 048
  2. NEXIUM [Suspect]
     Indication: DYSPEPSIA
     Route: 048
  3. NEXIUM [Suspect]
     Route: 048
  4. NEXIUM [Suspect]
     Route: 048
  5. RESTASIS [Concomitant]
  6. MOMETASONE FUROATE [Concomitant]
  7. FUROATE [Concomitant]
  8. NASONEX [Concomitant]
     Indication: HYPERSENSITIVITY
  9. NASONEX [Concomitant]
  10. AMOXICILLIN [Concomitant]
     Indication: COUGH

REACTIONS (4)
  - ABDOMINAL PAIN [None]
  - BACK PAIN [None]
  - DRY MOUTH [None]
  - INCORRECT DOSE ADMINISTERED [None]
